FAERS Safety Report 7274912-8 (Version None)
Quarter: 2011Q1

REPORT INFORMATION
  Report Type: 
  Country: None (occurrence: None)
  Receive Date: 20110204
  Receipt Date: 20110126
  Transmission Date: 20110831
  Serious: Yes (Other)
  Sender: FDA-Public Use
  Company Number: FR-SANOFI-AVENTIS-2011SA005604

PATIENT
  Age: 80 Year
  Sex: Female

DRUGS (4)
  1. PREVISCAN [Concomitant]
     Route: 048
  2. MULTAQ [Suspect]
     Indication: ATRIAL FIBRILLATION
     Route: 048
     Dates: start: 20101210
  3. ATACAND [Concomitant]
     Route: 048
  4. TAHOR [Concomitant]
     Route: 048

REACTIONS (6)
  - JAUNDICE [None]
  - UNDERDOSE [None]
  - CYTOLYTIC HEPATITIS [None]
  - NAUSEA [None]
  - TRANSAMINASES INCREASED [None]
  - FATIGUE [None]
